FAERS Safety Report 4692244-9 (Version None)
Quarter: 2005Q2

REPORT INFORMATION
  Report Type: 
  Country: None (occurrence: None)
  Receive Date: 20050614
  Receipt Date: 20040823
  Transmission Date: 20051028
  Serious: Yes (Hospitalization)
  Sender: FDA-Public Use
  Company Number: 201660

PATIENT
  Age: 62 Year
  Sex: Male
  Weight: 84 kg

DRUGS (5)
  1. AVONEX [Suspect]
     Indication: MULTIPLE SCLEROSIS
     Dosage: 30 UG; QW; IM
     Route: 030
     Dates: start: 20040625
  2. MITOXANTRONE [Concomitant]
  3. B12 [Concomitant]
  4. TAMSULOSIN HCI [Concomitant]
  5. AMITRIPTYLIN HCI [Concomitant]

REACTIONS (2)
  - CHILLS [None]
  - PARALYSIS [None]
